FAERS Safety Report 8457349-5 (Version None)
Quarter: 2012Q2

REPORT INFORMATION
  Report Type: 
  Country: None (occurrence: None)
  Receive Date: 20120621
  Receipt Date: 20120611
  Transmission Date: 20120825
  Serious: Yes (Other)
  Sender: FDA-Public Use
  Company Number: US-ELI_LILLY_AND_COMPANY-US201205006470

PATIENT
  Sex: Female
  Weight: 80.272 kg

DRUGS (13)
  1. BYDUREON [Suspect]
     Indication: TYPE 2 DIABETES MELLITUS
     Dosage: 2 MG, WEEKLY (1/W)
     Route: 058
     Dates: start: 20120503, end: 20120514
  2. LISINOPRIL [Concomitant]
     Dosage: 2.5 MG, QD
     Route: 048
  3. HYDROCHLOROTHIAZIDE [Concomitant]
     Dosage: 12.5 MG, QD
     Route: 048
  4. FISH OIL [Concomitant]
     Dosage: UNK, QD
     Route: 048
  5. CALCIUM 600 PLUS VITAMIN D [Concomitant]
     Dosage: 1 DF, BID
  6. MULTIVITAMINS, OTHER COMBINATIONS [Concomitant]
     Dosage: UNK, QD
     Route: 048
  7. NITROGLYCERIN [Concomitant]
     Dosage: 0.4 MG, PRN
  8. PLAVIX [Concomitant]
     Dosage: 75 MG, QD
     Route: 048
  9. METFORMIN HCL [Concomitant]
     Indication: TYPE 2 DIABETES MELLITUS
     Dosage: 1000 MG, BID
     Route: 048
  10. PRAVACHOL [Concomitant]
     Dosage: 40 MG, QD
     Route: 048
  11. CARVEDILOL [Concomitant]
     Dosage: 12.5 MG, BID
     Route: 048
  12. ASPIRIN [Concomitant]
     Dosage: 81 MG, QD
     Route: 048
  13. NIACIN [Concomitant]
     Dosage: 750 MG, BID
     Route: 048

REACTIONS (2)
  - URTICARIA [None]
  - ANGIOEDEMA [None]
